FAERS Safety Report 16478179 (Version 1)
Quarter: 2019Q2

REPORT INFORMATION
  Report Type: Spontaneous
  Country: JP (occurrence: JP)
  Receive Date: 20190626
  Receipt Date: 20190626
  Transmission Date: 20190711
  Serious: Yes (Other)
  Sender: FDA-Public Use
  Company Number: JP-PFIZER INC-2019256643

PATIENT

DRUGS (2)
  1. SELARA 25MG [Suspect]
     Active Substance: EPLERENONE
     Indication: CARDIAC FAILURE
     Dosage: 1 DF, UNK
     Route: 048
  2. SELARA 25MG [Suspect]
     Active Substance: EPLERENONE
     Indication: HYPERTENSION

REACTIONS (1)
  - Blood potassium decreased [Unknown]
